FAERS Safety Report 17720085 (Version 2)
Quarter: 2020Q2

REPORT INFORMATION
  Report Type: Report from Study
  Country: KR (occurrence: KR)
  Receive Date: 20200428
  Receipt Date: 20200504
  Transmission Date: 20200714
  Serious: Yes (Hospitalization, Other)
  Sender: FDA-Public Use
  Company Number: KR-ASTELLAS-2018US049742

PATIENT
  Age: 65 Year
  Sex: Male
  Weight: 49 kg

DRUGS (113)
  1. ENZALUTAMIDE [Suspect]
     Active Substance: ENZALUTAMIDE
     Indication: HORMONE-REFRACTORY PROSTATE CANCER
     Route: 048
     Dates: start: 20180328
  2. DEXILANT [Concomitant]
     Active Substance: DEXLANSOPRAZOLE
     Indication: PROPHYLAXIS
     Dosage: 30 MG (DAILY DOSE)
     Route: 048
  3. THRUPASS ODT [Concomitant]
     Indication: BENIGN PROSTATIC HYPERPLASIA
     Dosage: 8 MG, DAILY
     Route: 048
  4. BICART [SODIUM BICARBONATE] [Concomitant]
     Route: 065
     Dates: start: 20180409, end: 20180409
  5. BICART [SODIUM BICARBONATE] [Concomitant]
     Route: 065
     Dates: start: 20180427, end: 20180427
  6. BICART [SODIUM BICARBONATE] [Concomitant]
     Route: 065
     Dates: start: 20180514, end: 20180514
  7. BICART [SODIUM BICARBONATE] [Concomitant]
     Route: 065
     Dates: start: 20180530, end: 20180530
  8. BICART [SODIUM BICARBONATE] [Concomitant]
     Route: 065
     Dates: start: 20180604, end: 20180604
  9. BICART [SODIUM BICARBONATE] [Concomitant]
     Route: 065
     Dates: start: 20180608, end: 20180608
  10. BICART [SODIUM BICARBONATE] [Concomitant]
     Route: 065
     Dates: start: 20180620, end: 20180620
  11. FUTHAN [Concomitant]
     Active Substance: NAFAMOSTAT MESYLATE
     Route: 065
     Dates: start: 20180504, end: 20180504
  12. PHENIRAMINE [Concomitant]
     Active Substance: PHENIRAMINE
     Route: 065
     Dates: start: 20180627, end: 20180627
  13. PHENIRAMINE [Concomitant]
     Active Substance: PHENIRAMINE
     Route: 065
     Dates: start: 20180629, end: 20180629
  14. PHENIRAMINE [Concomitant]
     Active Substance: PHENIRAMINE
     Route: 065
     Dates: start: 20180725, end: 20180725
  15. PHENIRAMINE [Concomitant]
     Active Substance: PHENIRAMINE
     Route: 065
     Dates: start: 20180824, end: 20180824
  16. PHENIRAMINE [Concomitant]
     Active Substance: PHENIRAMINE
     Route: 065
     Dates: start: 20181008, end: 20181008
  17. PHENIRAMINE [Concomitant]
     Active Substance: PHENIRAMINE
     Route: 065
     Dates: start: 20181102, end: 20181102
  18. NOVOMIX [Concomitant]
     Active Substance: INSULIN ASPART
     Indication: DIABETES MELLITUS
     Dosage: 18 UNITS (DAILY DOSE)
     Route: 065
  19. BICART [SODIUM BICARBONATE] [Concomitant]
     Route: 065
     Dates: start: 20180406, end: 20180406
  20. BICART [SODIUM BICARBONATE] [Concomitant]
     Route: 065
     Dates: start: 20180425, end: 20180425
  21. BICART [SODIUM BICARBONATE] [Concomitant]
     Route: 065
     Dates: start: 20180629, end: 20180629
  22. BICART [SODIUM BICARBONATE] [Concomitant]
     Route: 065
     Dates: start: 20180710, end: 20180710
  23. FUTHAN [Concomitant]
     Active Substance: NAFAMOSTAT MESYLATE
     Route: 065
     Dates: start: 20180420, end: 20180420
  24. FUTHAN [Concomitant]
     Active Substance: NAFAMOSTAT MESYLATE
     Route: 065
     Dates: start: 20180427, end: 20180427
  25. PHENIRAMINE [Concomitant]
     Active Substance: PHENIRAMINE
     Route: 065
     Dates: start: 20180613, end: 20180613
  26. PHENIRAMINE [Concomitant]
     Active Substance: PHENIRAMINE
     Route: 065
     Dates: start: 20180910, end: 20180910
  27. VIGAMOX [Concomitant]
     Active Substance: MOXIFLOXACIN HYDROCHLORIDE
     Indication: OEDEMA
     Dosage: 1 DROPS (DAILY DOSE)
     Route: 047
     Dates: start: 20180406, end: 20180617
  28. BICART [SODIUM BICARBONATE] [Concomitant]
     Route: 065
     Dates: start: 20180615, end: 20180615
  29. BICART [SODIUM BICARBONATE] [Concomitant]
     Route: 065
     Dates: start: 20180707, end: 20180707
  30. BICART [SODIUM BICARBONATE] [Concomitant]
     Route: 065
     Dates: start: 20180718, end: 20180718
  31. BICART [SODIUM BICARBONATE] [Concomitant]
     Route: 065
     Dates: start: 20180720, end: 20180720
  32. FUTHAN [Concomitant]
     Active Substance: NAFAMOSTAT MESYLATE
     Route: 065
     Dates: start: 20180404, end: 20180404
  33. FUTHAN [Concomitant]
     Active Substance: NAFAMOSTAT MESYLATE
     Route: 065
     Dates: start: 20180416, end: 20180416
  34. FUTHAN [Concomitant]
     Active Substance: NAFAMOSTAT MESYLATE
     Route: 065
     Dates: start: 20180509, end: 20180509
  35. PHENIRAMINE [Concomitant]
     Active Substance: PHENIRAMINE
     Route: 065
     Dates: start: 20180611, end: 20180611
  36. PHENIRAMINE [Concomitant]
     Active Substance: PHENIRAMINE
     Route: 065
     Dates: start: 20180907, end: 20180907
  37. LASIX [Concomitant]
     Active Substance: FUROSEMIDE
     Indication: END STAGE RENAL DISEASE
     Dosage: 2 DF (DAILY DOSE)
     Route: 048
  38. ROSTAL [Concomitant]
     Indication: DIABETES MELLITUS
     Dosage: 100 MG, DAILY
     Route: 048
  39. BICART [SODIUM BICARBONATE] [Concomitant]
     Route: 065
     Dates: start: 20180430, end: 20180430
  40. BICART [SODIUM BICARBONATE] [Concomitant]
     Route: 065
     Dates: start: 20180502, end: 20180502
  41. BICART [SODIUM BICARBONATE] [Concomitant]
     Route: 065
     Dates: start: 20180516, end: 20180516
  42. BICART [SODIUM BICARBONATE] [Concomitant]
     Route: 065
     Dates: start: 20180523, end: 20180523
  43. BICART [SODIUM BICARBONATE] [Concomitant]
     Route: 065
     Dates: start: 20180618, end: 20180618
  44. FUTHAN [Concomitant]
     Active Substance: NAFAMOSTAT MESYLATE
     Route: 065
     Dates: start: 20180409, end: 20180409
  45. PHENIRAMINE [Concomitant]
     Active Substance: PHENIRAMINE
     Route: 065
     Dates: start: 20180413, end: 20180413
  46. PHENIRAMINE [Concomitant]
     Active Substance: PHENIRAMINE
     Route: 065
     Dates: start: 20180523, end: 20180523
  47. PHENIRAMINE [Concomitant]
     Active Substance: PHENIRAMINE
     Route: 065
     Dates: start: 20180615, end: 20180615
  48. PHENIRAMINE [Concomitant]
     Active Substance: PHENIRAMINE
     Route: 065
     Dates: start: 20181005, end: 20181005
  49. DILATREND [Concomitant]
     Active Substance: CARVEDILOL
     Indication: HYPERTENSION
     Dosage: 50 MG (DAILY DOSE)
     Route: 048
  50. MICARDIS [Concomitant]
     Active Substance: TELMISARTAN
     Indication: HYPERTENSION
     Dosage: 80 MG (DAILY DOSE)
     Route: 048
  51. ADALAT [Concomitant]
     Active Substance: NIFEDIPINE
     Dosage: 120 MG (DAILY DOSE), UNKNOWN FREQ.
     Route: 048
     Dates: start: 20181031
  52. BICART [SODIUM BICARBONATE] [Concomitant]
     Route: 065
     Dates: start: 20180330, end: 20180330
  53. BICART [SODIUM BICARBONATE] [Concomitant]
     Route: 065
     Dates: start: 20180402, end: 20180402
  54. BICART [SODIUM BICARBONATE] [Concomitant]
     Route: 065
     Dates: start: 20180411, end: 20180411
  55. BICART [SODIUM BICARBONATE] [Concomitant]
     Route: 065
     Dates: start: 20180418, end: 20180418
  56. BICART [SODIUM BICARBONATE] [Concomitant]
     Route: 065
     Dates: start: 20180504, end: 20180504
  57. BICART [SODIUM BICARBONATE] [Concomitant]
     Route: 065
     Dates: start: 20180528, end: 20180528
  58. BICART [SODIUM BICARBONATE] [Concomitant]
     Route: 065
     Dates: start: 20180613, end: 20180613
  59. FUTHAN [Concomitant]
     Active Substance: NAFAMOSTAT MESYLATE
     Indication: END STAGE RENAL DISEASE
     Route: 065
     Dates: end: 20180328
  60. FUTHAN [Concomitant]
     Active Substance: NAFAMOSTAT MESYLATE
     Route: 065
     Dates: start: 20180418, end: 20180418
  61. PHENIRAMINE [Concomitant]
     Active Substance: PHENIRAMINE
     Route: 065
     Dates: start: 20180723, end: 20180723
  62. PHENIRAMINE [Concomitant]
     Active Substance: PHENIRAMINE
     Route: 065
     Dates: start: 20180822, end: 20180822
  63. PHENIRAMINE [Concomitant]
     Active Substance: PHENIRAMINE
     Route: 065
     Dates: start: 20181103, end: 20181103
  64. DIPHERELINE [TRIPTORELIN ACETATE] [Concomitant]
     Indication: PROSTATE CANCER
     Dosage: 11.25 MG (DAILY DOSE)
     Route: 065
     Dates: end: 20180328
  65. DIPHERELINE [TRIPTORELIN ACETATE] [Concomitant]
     Dosage: 11.25 MG (DAILY DOSE)
     Route: 065
     Dates: end: 20180620
  66. BICART [SODIUM BICARBONATE] [Concomitant]
     Route: 065
     Dates: start: 20180404, end: 20180404
  67. BICART [SODIUM BICARBONATE] [Concomitant]
     Route: 065
     Dates: start: 20180413, end: 20180413
  68. BICART [SODIUM BICARBONATE] [Concomitant]
     Route: 065
     Dates: start: 20180511, end: 20180511
  69. BICART [SODIUM BICARBONATE] [Concomitant]
     Route: 065
     Dates: start: 20180518, end: 20180518
  70. BICART [SODIUM BICARBONATE] [Concomitant]
     Route: 065
     Dates: start: 20180521, end: 20180521
  71. BICART [SODIUM BICARBONATE] [Concomitant]
     Route: 065
     Dates: start: 20180606, end: 20180606
  72. BICART [SODIUM BICARBONATE] [Concomitant]
     Route: 065
     Dates: start: 20180611, end: 20180611
  73. BICART [SODIUM BICARBONATE] [Concomitant]
     Route: 065
     Dates: start: 20180622, end: 20180622
  74. BICART [SODIUM BICARBONATE] [Concomitant]
     Route: 065
     Dates: start: 20180714, end: 20180714
  75. FUTHAN [Concomitant]
     Active Substance: NAFAMOSTAT MESYLATE
     Route: 065
     Dates: start: 20180411, end: 20180411
  76. FUTHAN [Concomitant]
     Active Substance: NAFAMOSTAT MESYLATE
     Route: 065
     Dates: start: 20180423, end: 20180423
  77. PHENIRAMINE [Concomitant]
     Active Substance: PHENIRAMINE
     Route: 065
     Dates: start: 20180511, end: 20180511
  78. PHENIRAMINE [Concomitant]
     Active Substance: PHENIRAMINE
     Route: 065
     Dates: start: 20180608, end: 20180608
  79. CALCIUM CARBONATE. [Concomitant]
     Active Substance: CALCIUM CARBONATE
     Indication: END STAGE RENAL DISEASE
     Dosage: 500 MG (DAILY DOSE), UNKNOWN FREQ.
     Route: 048
     Dates: start: 20180413, end: 20180805
  80. KALIMATE [Concomitant]
     Active Substance: CALCIUM POLYSTYRENE SULFONATE
     Indication: HYPERKALAEMIA
     Dosage: 5 G (DAILY DOSE), UNKNOWN FREQ.
     Route: 048
     Dates: start: 20180413, end: 20180805
  81. ADALAT [Concomitant]
     Active Substance: NIFEDIPINE
     Indication: HYPERTENSION
     Dosage: 120 MG (DAILY DOSE)
     Route: 048
  82. THRUPASS ODT [Concomitant]
     Indication: HYPERTONIC BLADDER
  83. AVASTIN [SIMVASTATIN] [Concomitant]
     Active Substance: SIMVASTATIN
     Indication: OEDEMA
     Dosage: 0.05 ML (DAILY DOSE)
     Route: 065
  84. EXJADE [Concomitant]
     Active Substance: DEFERASIROX
     Indication: PROSTATE CANCER
     Dosage: 90 MG, DAILY
     Route: 048
     Dates: start: 20180829
  85. BICART [SODIUM BICARBONATE] [Concomitant]
     Route: 065
     Dates: start: 20180507, end: 20180507
  86. BICART [SODIUM BICARBONATE] [Concomitant]
     Route: 065
     Dates: start: 20180525, end: 20180525
  87. BICART [SODIUM BICARBONATE] [Concomitant]
     Route: 065
     Dates: start: 20180601, end: 20180601
  88. BICART [SODIUM BICARBONATE] [Concomitant]
     Route: 065
     Dates: start: 20180625, end: 20180625
  89. BICART [SODIUM BICARBONATE] [Concomitant]
     Route: 065
     Dates: start: 20180627, end: 20180627
  90. BICART [SODIUM BICARBONATE] [Concomitant]
     Route: 065
     Dates: start: 20180705, end: 20180705
  91. BICART [SODIUM BICARBONATE] [Concomitant]
     Route: 065
     Dates: start: 20180716, end: 20180716
  92. FUTHAN [Concomitant]
     Active Substance: NAFAMOSTAT MESYLATE
     Route: 065
     Dates: start: 20180406, end: 20180406
  93. FUTHAN [Concomitant]
     Active Substance: NAFAMOSTAT MESYLATE
     Route: 065
     Dates: start: 20180507, end: 20180507
  94. PHENIRAMINE [Concomitant]
     Active Substance: PHENIRAMINE
     Indication: PREMEDICATION
     Route: 065
     Dates: start: 20180409, end: 20180409
  95. PHENIRAMINE [Concomitant]
     Active Substance: PHENIRAMINE
     Route: 065
     Dates: start: 20180509, end: 20180509
  96. DEXILANT [Concomitant]
     Active Substance: DEXLANSOPRAZOLE
     Dosage: 30 MG (DAILY DOSE), UNKNOWN FREQ.
     Route: 048
     Dates: start: 20181105, end: 20181105
  97. BICART [SODIUM BICARBONATE] [Concomitant]
     Indication: END STAGE RENAL DISEASE
     Route: 065
     Dates: end: 20180328
  98. BICART [SODIUM BICARBONATE] [Concomitant]
     Route: 065
     Dates: start: 20180416, end: 20180416
  99. BICART [SODIUM BICARBONATE] [Concomitant]
     Route: 065
     Dates: start: 20180420, end: 20180420
  100. BICART [SODIUM BICARBONATE] [Concomitant]
     Route: 065
     Dates: start: 20180423, end: 20180423
  101. BICART [SODIUM BICARBONATE] [Concomitant]
     Route: 065
     Dates: start: 20180509, end: 20180509
  102. BICART [SODIUM BICARBONATE] [Concomitant]
     Route: 065
     Dates: start: 20180702, end: 20180702
  103. BICART [SODIUM BICARBONATE] [Concomitant]
     Route: 065
     Dates: start: 20180712, end: 20180712
  104. FUTHAN [Concomitant]
     Active Substance: NAFAMOSTAT MESYLATE
     Route: 065
     Dates: start: 20180330, end: 20180330
  105. FUTHAN [Concomitant]
     Active Substance: NAFAMOSTAT MESYLATE
     Route: 065
     Dates: start: 20180402, end: 20180402
  106. FUTHAN [Concomitant]
     Active Substance: NAFAMOSTAT MESYLATE
     Route: 065
     Dates: start: 20180413, end: 20180413
  107. FUTHAN [Concomitant]
     Active Substance: NAFAMOSTAT MESYLATE
     Route: 065
     Dates: start: 20180425, end: 20180425
  108. FUTHAN [Concomitant]
     Active Substance: NAFAMOSTAT MESYLATE
     Route: 065
     Dates: start: 20180430, end: 20180430
  109. FUTHAN [Concomitant]
     Active Substance: NAFAMOSTAT MESYLATE
     Route: 065
     Dates: start: 20180502, end: 20180502
  110. FUTHAN [Concomitant]
     Active Substance: NAFAMOSTAT MESYLATE
     Route: 065
     Dates: start: 20180511, end: 20180511
  111. FUTHAN [Concomitant]
     Active Substance: NAFAMOSTAT MESYLATE
     Route: 065
     Dates: start: 20180514, end: 20180514
  112. FUTHAN [Concomitant]
     Active Substance: NAFAMOSTAT MESYLATE
     Route: 065
     Dates: start: 20180516, end: 20180516
  113. PHENIRAMINE [Concomitant]
     Active Substance: PHENIRAMINE
     Route: 065
     Dates: start: 20181010, end: 20181010

REACTIONS (7)
  - Pruritus [Recovered/Resolved]
  - Myocardial infarction [Recovered/Resolved]
  - Pain in extremity [Recovered/Resolved]
  - Skin ulcer [Recovered/Resolved]
  - Pyrexia [Recovered/Resolved]
  - Pericardial effusion [Recovered/Resolved]
  - Pyrexia [Recovered/Resolved]

NARRATIVE: CASE EVENT DATE: 20180711
